FAERS Safety Report 6827122-X (Version None)
Quarter: 2010Q3

REPORT INFORMATION
  Report Type: 
  Country: None (occurrence: None)
  Receive Date: 20100709
  Receipt Date: 20100626
  Transmission Date: 20110219
  Serious: No
  Sender: FDA-Public Use
  Company Number: US-B.I. PHARMACEUTICALS,INC./RIDGEFIELD-2010-BP-07306BP

PATIENT
  Age: 83 Year
  Sex: Female

DRUGS (5)
  1. SPIRIVA [Suspect]
     Indication: CHRONIC OBSTRUCTIVE PULMONARY DISEASE
     Dosage: 18 MCG
     Route: 055
     Dates: start: 20100401
  2. DIOVAN [Concomitant]
     Indication: HYPERTENSION
     Route: 048
     Dates: start: 20070101
  3. ASPIRIN [Concomitant]
     Dosage: 81 MG
     Route: 048
  4. FLUTICASONE [Concomitant]
     Route: 055
  5. GLUCOSAMINE [Concomitant]
     Route: 048

REACTIONS (4)
  - FATIGUE [None]
  - MALAISE [None]
  - MOOD ALTERED [None]
  - PRURITUS [None]
